FAERS Safety Report 25980197 (Version 1)
Quarter: 2025Q4

REPORT INFORMATION
  Report Type: Spontaneous
  Country: US (occurrence: None)
  Receive Date: 20251030
  Receipt Date: 20251030
  Transmission Date: 20260118
  Serious: Yes (Hospitalization)
  Sender: FDA-CTU
  Company Number: None

PATIENT
  Age: 71 Year
  Sex: Female

DRUGS (1)
  1. CAPECITABINE [Suspect]
     Active Substance: CAPECITABINE
     Dosage: 100MG BID

REACTIONS (7)
  - Bone pain [None]
  - Nausea [None]
  - Vomiting [None]
  - Skin burning sensation [None]
  - Diarrhoea [None]
  - Dehydration [None]
  - Hypophagia [None]
